FAERS Safety Report 13474617 (Version 1)
Quarter: 2017Q2

REPORT INFORMATION
  Report Type: Report from Study
  Country: US (occurrence: US)
  Receive Date: 20170424
  Receipt Date: 20170424
  Transmission Date: 20170830
  Serious: Yes (Other)
  Sender: FDA-Public Use
  Company Number: US-PFIZER INC-2017171089

PATIENT
  Age: 59 Year
  Sex: Female

DRUGS (2)
  1. IBRANCE [Suspect]
     Active Substance: PALBOCICLIB
     Indication: BREAST CANCER
     Dosage: 125 MG, DAILY
     Route: 048
     Dates: start: 20150701, end: 20151101
  2. IBRANCE [Suspect]
     Active Substance: PALBOCICLIB
     Dosage: 100 MG, DAILY
     Route: 048
     Dates: start: 20151102

REACTIONS (9)
  - Dyspepsia [Unknown]
  - Arthralgia [Unknown]
  - Skin disorder [Unknown]
  - Fatigue [Unknown]
  - Decreased appetite [Unknown]
  - Mental impairment [Unknown]
  - Insomnia [Unknown]
  - Stomatitis [Unknown]
  - Nausea [Unknown]
